FAERS Safety Report 16714220 (Version 1)
Quarter: 2019Q3

REPORT INFORMATION
  Report Type: Spontaneous
  Country: US (occurrence: US)
  Receive Date: 20190819
  Receipt Date: 20190819
  Transmission Date: 20191004
  Serious: No
  Sender: FDA-Public Use
  Company Number: US-MALLINCKRODT-T201805255

PATIENT
  Age: 29 Year
  Sex: Female

DRUGS (1)
  1. OXYCODONE/ACETAMINOPHEN [Suspect]
     Active Substance: ACETAMINOPHEN\OXYCODONE HYDROCHLORIDE
     Indication: TOOTHACHE
     Dosage: 7.5/325 MG 1 TABLET EVERY 6 HOURS
     Route: 048
     Dates: start: 20181127

REACTIONS (2)
  - Feeling hot [Unknown]
  - Abdominal pain upper [Unknown]

NARRATIVE: CASE EVENT DATE: 20181127
